FAERS Safety Report 7204468-7 (Version None)
Quarter: 2010Q4

REPORT INFORMATION
  Report Type: 
  Country: None (occurrence: None)
  Receive Date: 20101220
  Receipt Date: 20101203
  Transmission Date: 20110411
  Serious: Yes (Hospitalization)
  Sender: FDA-Public Use
  Company Number: GER/GER/10/0016423

PATIENT
  Sex: Male
  Weight: 140 kg

DRUGS (2)
  1. AMLODIPINE [Suspect]
     Indication: HYPERTENSION
     Dosage: ORAL
     Route: 048
  2. AMLODIPINE BESYLATE/VALSARTAN (EXFORGE) [Suspect]
     Indication: HYPERTENSION
     Dosage: ORAL
     Route: 048
     Dates: start: 20100804

REACTIONS (2)
  - HAEMOLYTIC ANAEMIA [None]
  - WRONG DRUG ADMINISTERED [None]
